FAERS Safety Report 12693942 (Version 1)
Quarter: 2016Q3

REPORT INFORMATION
  Report Type: Spontaneous
  Country: KW (occurrence: KW)
  Receive Date: 20160829
  Receipt Date: 20160829
  Transmission Date: 20161109
  Serious: Yes (Other)
  Sender: FDA-Public Use
  Company Number: PHHY2016KW053811

PATIENT
  Sex: Female

DRUGS (1)
  1. EXJADE [Suspect]
     Active Substance: DEFERASIROX
     Indication: THALASSAEMIA BETA
     Dosage: UNK
     Route: 048

REACTIONS (7)
  - Proteinuria [Unknown]
  - Nephropathy [Unknown]
  - Blood creatinine increased [Unknown]
  - Ovarian hyperstimulation syndrome [Unknown]
  - Nephrosclerosis [Unknown]
  - Renal impairment [Unknown]
  - Arthralgia [Unknown]

NARRATIVE: CASE EVENT DATE: 2013
